FAERS Safety Report 4989332-6 (Version None)
Quarter: 2006Q2

REPORT INFORMATION
  Report Type: 
  Country: None (occurrence: None)
  Receive Date: 20060426
  Receipt Date: 20060419
  Transmission Date: 20061013
  Serious: Yes (Hospitalization, Other)
  Sender: FDA-Public Use
  Company Number: 2005113397

PATIENT
  Age: 85 Year
  Sex: Female
  Weight: 45.3597 kg

DRUGS (4)
  1. XALATAN [Suspect]
     Indication: GLAUCOMA
     Dosage: UNKNOWN (1.5 MCG, UNKNOWN) OPHTHALMIC
     Route: 047
  2. XALATAN [Suspect]
     Indication: INTRAOCULAR PRESSURE INCREASED
     Dosage: UNKNOWN (1.5 MCG, UNKNOWN) OPHTHALMIC
     Route: 047
  3. ALPHAGAN [Concomitant]
  4. LUMIGAN [Concomitant]

REACTIONS (11)
  - ARTHRITIS [None]
  - BUNION OPERATION [None]
  - CONDITION AGGRAVATED [None]
  - EYELASH DISCOLOURATION [None]
  - FALL [None]
  - GROWTH OF EYELASHES [None]
  - HAIR DISORDER [None]
  - PROCEDURAL PAIN [None]
  - SKIN DISCOLOURATION [None]
  - TRICHIASIS [None]
  - UNEVALUABLE EVENT [None]
